FAERS Safety Report 9451581 (Version 2)
Quarter: 2013Q3

REPORT INFORMATION
  Report Type: Spontaneous
  Country: JP (occurrence: JP)
  Receive Date: 20130811
  Receipt Date: 20130913
  Transmission Date: 20140515
  Serious: Yes (Hospitalization, Other)
  Sender: FDA-Public Use
  Company Number: JP-UCBSA-091287

PATIENT
  Age: 31 Year
  Sex: Female

DRUGS (3)
  1. CIMZIA [Suspect]
     Indication: RHEUMATOID ARTHRITIS
     Route: 058
     Dates: start: 20130415, end: 20130605
  2. CALONAL [Concomitant]
     Dosage: UNSPECIFIED DOSE
     Route: 048
  3. CELECOX [Concomitant]
     Indication: RHEUMATOID ARTHRITIS
     Dosage: TOTAL DAILY DOSE -100MG
     Route: 048
     Dates: start: 201207, end: 20130708

REACTIONS (4)
  - Pyrexia [Recovering/Resolving]
  - Oropharyngeal pain [Recovered/Resolved]
  - White blood cell count decreased [Recovered/Resolved]
  - Lupus-like syndrome [Unknown]
